FAERS Safety Report 25803110 (Version 1)
Quarter: 2025Q3

REPORT INFORMATION
  Report Type: Spontaneous
  Country: US (occurrence: US)
  Receive Date: 20250915
  Receipt Date: 20250915
  Transmission Date: 20251020
  Serious: No
  Sender: SANOFI AVENTIS
  Company Number: US-SA-2025SA274930

PATIENT
  Sex: Female
  Weight: 56.6 kg

DRUGS (8)
  1. DUPIXENT [Suspect]
     Active Substance: DUPILUMAB
     Indication: Nasal polyps
     Dosage: 300 MG, QOW
     Route: 058
  2. LEVOTHYROXINE SODIUM [Concomitant]
     Active Substance: LEVOTHYROXINE SODIUM
  3. ALVESCO [Concomitant]
     Active Substance: CICLESONIDE
  4. PREGABALIN [Concomitant]
     Active Substance: PREGABALIN
  5. OXCARBAZEPINE [Concomitant]
     Active Substance: OXCARBAZEPINE
  6. LEVETIRACETAM [Concomitant]
     Active Substance: LEVETIRACETAM
  7. ATORVASTATIN CALCIUM [Concomitant]
     Active Substance: ATORVASTATIN CALCIUM
  8. MINERALS\VITAMINS [Concomitant]
     Active Substance: MINERALS\VITAMINS

REACTIONS (2)
  - Throat irritation [Unknown]
  - Oropharyngeal pain [Unknown]
